FAERS Safety Report 23378215 (Version 1)
Quarter: 2024Q1

REPORT INFORMATION
  Report Type: Spontaneous
  Country: CN (occurrence: CN)
  Receive Date: 20240108
  Receipt Date: 20240108
  Transmission Date: 20240409
  Serious: Yes (Hospitalization, Disabling, Other)
  Sender: FDA-Public Use
  Company Number: CN-PFIZER INC-PV202400000723

PATIENT
  Age: 52 Year
  Sex: Male
  Weight: 55 kg

DRUGS (3)
  1. LINEZOLID [Suspect]
     Active Substance: LINEZOLID
     Indication: Pulmonary tuberculosis
     Dosage: 0.6 G, 1X/DAY
     Route: 048
     Dates: start: 20230904, end: 20231129
  2. CYCLOSERINE [Suspect]
     Active Substance: CYCLOSERINE
     Indication: Pulmonary tuberculosis
     Dosage: 250 MG, 3X/DAY
     Route: 048
     Dates: start: 20230904, end: 20231129
  3. CLOFAZIMINE [Concomitant]
     Active Substance: CLOFAZIMINE
     Indication: Pulmonary tuberculosis
     Dosage: 100 MG, 1X/DAY
     Route: 048
     Dates: start: 20230904, end: 20231208

REACTIONS (5)
  - Myelosuppression [Recovering/Resolving]
  - Abnormal behaviour [Recovering/Resolving]
  - White blood cell count decreased [Recovering/Resolving]
  - Anaemia [Recovering/Resolving]
  - Off label use [Unknown]

NARRATIVE: CASE EVENT DATE: 20230904
